FAERS Safety Report 6251444-7 (Version None)
Quarter: 2009Q2

REPORT INFORMATION
  Report Type: 
  Country: None (occurrence: None)
  Receive Date: 20090630
  Receipt Date: 20090622
  Transmission Date: 20091009
  Serious: Yes (Other)
  Sender: FDA-Public Use
  Company Number: US-JNJFOC-20090608359

PATIENT
  Age: 62 Year

DRUGS (3)
  1. REMICADE [Suspect]
     Dosage: AT WEEK 10
     Route: 042
  2. REMICADE [Suspect]
     Indication: COLITIS ULCERATIVE
     Route: 042
  3. MERCAPTOPURINE [Suspect]
     Indication: COLITIS ULCERATIVE

REACTIONS (3)
  - DEMYELINATION [None]
  - DRUG INEFFECTIVE [None]
  - PARAESTHESIA [None]
